FAERS Safety Report 16536188 (Version 2)
Quarter: 2019Q3

REPORT INFORMATION
  Report Type: Spontaneous
  Country: US (occurrence: US)
  Receive Date: 20190705
  Receipt Date: 20190709
  Transmission Date: 20191004
  Serious: No
  Sender: FDA-Public Use
  Company Number: US-PFIZER INC-2019275624

PATIENT
  Age: 88 Year
  Sex: Male
  Weight: 122.47 kg

DRUGS (7)
  1. ZAROXOLYN [Concomitant]
     Active Substance: METOLAZONE
     Dosage: UNK
  2. XELJANZ [Suspect]
     Active Substance: TOFACITINIB CITRATE
     Indication: RHEUMATOID ARTHRITIS
     Dosage: 5 MG, DAILY
     Dates: start: 201809
  3. LEVAQUIN [Concomitant]
     Active Substance: LEVOFLOXACIN
     Dosage: UNK
     Dates: start: 201812
  4. BUMEX [Concomitant]
     Active Substance: BUMETANIDE
     Dosage: UNK
  5. ACIPHEX [Concomitant]
     Active Substance: RABEPRAZOLE SODIUM
     Indication: ABDOMINAL PAIN UPPER
     Dosage: 1 DF, DAILY (IN THE MORNING)
  6. ACIPHEX [Concomitant]
     Active Substance: RABEPRAZOLE SODIUM
     Dosage: 1 DF, 2X/DAY
  7. PREDNISONE. [Concomitant]
     Active Substance: PREDNISONE
     Dosage: UNK

REACTIONS (4)
  - Rhinorrhoea [Unknown]
  - Blood creatinine abnormal [Unknown]
  - Oedema peripheral [Unknown]
  - General physical health deterioration [Unknown]
